FAERS Safety Report 8375682-2 (Version None)
Quarter: 2012Q2

REPORT INFORMATION
  Report Type: 
  Country: None (occurrence: None)
  Receive Date: 20120522
  Receipt Date: 20120516
  Transmission Date: 20120825
  Serious: No
  Sender: FDA-Public Use
  Company Number: US-PFIZER INC-2012119653

PATIENT
  Sex: Female

DRUGS (4)
  1. NORVASC [Suspect]
     Dosage: UNK
  2. TIKOSYN [Suspect]
     Dosage: UNK
  3. NEURONTIN [Suspect]
     Dosage: UNK
  4. CELEBREX [Suspect]
     Dosage: UNK

REACTIONS (2)
  - LIGAMENT SPRAIN [None]
  - GAIT DISTURBANCE [None]
